FAERS Safety Report 13881299 (Version 1)
Quarter: 2017Q3

REPORT INFORMATION
  Report Type: Spontaneous
  Country: US (occurrence: US)
  Receive Date: 20170818
  Receipt Date: 20170818
  Transmission Date: 20171127
  Serious: No
  Sender: FDA-Public Use
  Company Number: US-ENDO PHARMACEUTICALS INC-2017-003575

PATIENT
  Sex: Female
  Weight: 68.93 kg

DRUGS (3)
  1. SUMAVEL DOSEPRO [Suspect]
     Active Substance: SUMATRIPTAN SUCCINATE
     Indication: MIGRAINE
     Dosage: 6 MG, USE 1 INJECTOR AND WAIT 2 HOURS AND USE ANOTHER IF NEEDED
     Route: 058
     Dates: start: 2015
  2. OXYCODONE/ACETAMINOPHEN 5MG/325MG [Concomitant]
     Active Substance: ACETAMINOPHEN\OXYCODONE HYDROCHLORIDE
     Indication: MIGRAINE
  3. CITALOPRAM [Concomitant]
     Active Substance: CITALOPRAM HYDROBROMIDE
     Indication: ANXIETY

REACTIONS (8)
  - Weight increased [Not Recovered/Not Resolved]
  - Injection site haemorrhage [Unknown]
  - Accidental exposure to product [Unknown]
  - Injection site pain [Unknown]
  - Feeling abnormal [Not Recovered/Not Resolved]
  - Angina pectoris [Not Recovered/Not Resolved]
  - Device malfunction [Unknown]
  - Bronchitis [Not Recovered/Not Resolved]

NARRATIVE: CASE EVENT DATE: 2016
